FAERS Safety Report 7346546-8 (Version None)
Quarter: 2011Q1

REPORT INFORMATION
  Report Type: 
  Country: None (occurrence: None)
  Receive Date: 20110311
  Receipt Date: 20110308
  Transmission Date: 20110831
  Serious: Yes (Hospitalization)
  Sender: FDA-Public Use
  Company Number: JP-EISAI INC-E2020-08749-SPO-JP

PATIENT

DRUGS (3)
  1. MELBIN [Concomitant]
     Indication: DIABETES MELLITUS
     Dosage: UNKNOWN
     Route: 048
  2. GLACTIV [Concomitant]
     Dosage: UNKNOWN
     Route: 048
  3. ARICEPT [Suspect]
     Indication: DEMENTIA ALZHEIMER'S TYPE
     Route: 048
     Dates: start: 20100301, end: 20110306

REACTIONS (1)
  - RHABDOMYOLYSIS [None]
